FAERS Safety Report 19880066 (Version 1)
Quarter: 2021Q3

REPORT INFORMATION
  Report Type: Spontaneous
  Country: BR (occurrence: BR)
  Receive Date: 20210924
  Receipt Date: 20210924
  Transmission Date: 20211014
  Serious: Yes (Hospitalization)
  Sender: FDA-Public Use
  Company Number: BR-EMD SERONO-9267213

PATIENT
  Sex: Female

DRUGS (2)
  1. CLADRIBINE. [Suspect]
     Active Substance: CLADRIBINE
     Dosage: SECOND YEAR THERAPY
  2. CLADRIBINE. [Suspect]
     Active Substance: CLADRIBINE
     Indication: RELAPSING-REMITTING MULTIPLE SCLEROSIS
     Dosage: FIRST YEAR THERAPY

REACTIONS (1)
  - Multiple sclerosis relapse [Not Recovered/Not Resolved]

NARRATIVE: CASE EVENT DATE: 2021
